FAERS Safety Report 25937723 (Version 1)
Quarter: 2025Q4

REPORT INFORMATION
  Report Type: Spontaneous
  Country: US (occurrence: US)
  Receive Date: 20251018
  Receipt Date: 20251018
  Transmission Date: 20260118
  Serious: Yes (Hospitalization)
  Sender: AUROBINDO
  Company Number: US-MLMSERVICE-20251007-PI665195-00303-2

PATIENT
  Age: 67 Year
  Sex: Female

DRUGS (12)
  1. SPIRONOLACTONE [Suspect]
     Active Substance: SPIRONOLACTONE
     Indication: Product used for unknown indication
     Dosage: UNK
     Route: 065
  2. LETROZOLE [Concomitant]
     Active Substance: LETROZOLE
     Indication: Metastases to bone
     Dosage: 2.5 MILLIGRAM, ONCE A DAY
     Route: 065
     Dates: start: 201206
  3. LETROZOLE [Concomitant]
     Active Substance: LETROZOLE
     Indication: Invasive ductal breast carcinoma
  4. LETROZOLE [Concomitant]
     Active Substance: LETROZOLE
     Indication: Triple positive breast cancer
  5. LETROZOLE [Concomitant]
     Active Substance: LETROZOLE
     Indication: Metastases to spine
  6. LETROZOLE [Concomitant]
     Active Substance: LETROZOLE
     Indication: Intraductal proliferative breast lesion
  7. ENHERTU [Concomitant]
     Active Substance: FAM-TRASTUZUMAB DERUXTECAN-NXKI
     Indication: Metastases to bone
     Dosage: UNK
     Route: 065
     Dates: start: 202110
  8. ENHERTU [Concomitant]
     Active Substance: FAM-TRASTUZUMAB DERUXTECAN-NXKI
     Indication: Invasive ductal breast carcinoma
     Dosage: 4.4 MILLIGRAM/KILOGRAM
     Route: 065
     Dates: start: 202212
  9. ENHERTU [Concomitant]
     Active Substance: FAM-TRASTUZUMAB DERUXTECAN-NXKI
     Indication: Triple positive breast cancer
     Dosage: 3.2 MILLIGRAM/KILOGRAM
     Route: 065
     Dates: start: 202303
  10. ENHERTU [Concomitant]
     Active Substance: FAM-TRASTUZUMAB DERUXTECAN-NXKI
     Indication: Metastases to spine
  11. ENHERTU [Concomitant]
     Active Substance: FAM-TRASTUZUMAB DERUXTECAN-NXKI
     Indication: Intraductal proliferative breast lesion
  12. XGEVA [Concomitant]
     Active Substance: DENOSUMAB
     Indication: Product used for unknown indication
     Dosage: 120 MILLIGRAM
     Route: 065
     Dates: start: 201305

REACTIONS (2)
  - Dehydration [Unknown]
  - Condition aggravated [Unknown]

NARRATIVE: CASE EVENT DATE: 20250101
